FAERS Safety Report 9128147 (Version 1)
Quarter: 2013Q1

REPORT INFORMATION
  Report Type: Spontaneous
  Country: GB (occurrence: GB)
  Receive Date: 20130228
  Receipt Date: 20130228
  Transmission Date: 20140127
  Serious: Yes (Hospitalization)
  Sender: FDA-Public Use
  Company Number: GB-009507513-1302GBR008447

PATIENT
  Sex: 0

DRUGS (1)
  1. SINEMET [Suspect]

REACTIONS (1)
  - Gastrostomy [Unknown]
